FAERS Safety Report 15226770 (Version 1)
Quarter: 2018Q3

REPORT INFORMATION
  Report Type: Spontaneous
  Country: MA (occurrence: MA)
  Receive Date: 20180801
  Receipt Date: 20180801
  Transmission Date: 20181010
  Serious: Yes (Other)
  Sender: FDA-Public Use
  Company Number: MA-CELGENEUS-MAR-20180709209

PATIENT
  Age: 45 Year
  Sex: Male

DRUGS (1)
  1. VIDAZA [Suspect]
     Active Substance: AZACITIDINE
     Indication: MYELODYSPLASTIC SYNDROME
     Route: 041

REACTIONS (3)
  - Confusional state [Recovered/Resolved]
  - Aphasia [Recovered/Resolved]
  - Nervous system disorder [Recovered/Resolved]
